FAERS Safety Report 21915836 (Version 1)
Quarter: 2023Q1

REPORT INFORMATION
  Report Type: Spontaneous
  Country: IN (occurrence: IN)
  Receive Date: 20230126
  Receipt Date: 20230126
  Transmission Date: 20230417
  Serious: Yes (Other)
  Sender: FDA-Public Use
  Company Number: IN-PFIZER INC-PV202300015777

PATIENT
  Age: 69 Year
  Sex: Female
  Weight: 73.6 kg

DRUGS (12)
  1. PALBOCICLIB [Suspect]
     Active Substance: PALBOCICLIB
     Dosage: 125 MG, 1X/DAY
     Route: 048
     Dates: start: 20221220
  2. DENOSUMAB [Concomitant]
     Active Substance: DENOSUMAB
     Dosage: 120 MG
     Dates: start: 202212
  3. DENOSUMAB [Concomitant]
     Active Substance: DENOSUMAB
     Dosage: 120 MG
     Dates: start: 20220118
  4. ANASTROZOLE [Concomitant]
     Active Substance: ANASTROZOLE
     Dosage: 1MG/1-0-0, TO CONTINUE
  5. RABEMAC [Concomitant]
     Dosage: 20MG/1-0-0, TO CONTINUE(1/2 HOUR BEFORE FOOD)
  6. SHELCAL [CALCIUM CARBONATE;COLECALCIFEROL] [Concomitant]
     Dosage: 500MG/0-1-0, TO COMTINUE(AFTER FOOD)
  7. D RISE [Concomitant]
     Dosage: 60K/MONTHLY ONCE TO CONTINUE(WITH MILK)
  8. LEVOTHYROXINE [Concomitant]
     Active Substance: LEVOTHYROXINE
     Dosage: 75MCG/1-0-0, TO CONTINUE(EMPTY STOMACH)
  9. ROSUVAS CV [Concomitant]
     Dosage: 10MG/0-0-1, TO CONTINUE
  10. OLNIN TRIO [Concomitant]
     Dosage: 40MG/1-0-0, TO CONTINUE
  11. NITROFURANTOIN [Concomitant]
     Active Substance: NITROFURANTOIN
     Dosage: 100MG/1-0-1, FOR 3 DAYS
  12. CITRALKA [Concomitant]
     Dosage: 2 TSP/1-0-1 FOR 3 DAYS IN A GLASS OF WATER

REACTIONS (3)
  - Blood pressure increased [Unknown]
  - Body surface area increased [Unknown]
  - Respiratory rate increased [Unknown]

NARRATIVE: CASE EVENT DATE: 20230118
